FAERS Safety Report 13656168 (Version 4)
Quarter: 2017Q3

REPORT INFORMATION
  Report Type: Report from Study
  Country: SE (occurrence: SE)
  Receive Date: 20170615
  Receipt Date: 20170721
  Transmission Date: 20171127
  Serious: Yes (Other)
  Sender: FDA-Public Use
  Company Number: SE-BRISTOL-MYERS SQUIBB COMPANY-BMS-2017-050875

PATIENT
  Age: 52 Year
  Sex: Female

DRUGS (2)
  1. ABATACEPT [Suspect]
     Active Substance: ABATACEPT
     Indication: RHEUMATOID ARTHRITIS
     Dosage: UNAVAILABLE
     Route: 065
     Dates: start: 20101202
  2. ABATACEPT [Suspect]
     Active Substance: ABATACEPT
     Indication: RHEUMATOID ARTHRITIS
     Dosage: 70 MG, UNK
     Route: 065
     Dates: start: 20110117

REACTIONS (2)
  - Lip squamous cell carcinoma [Unknown]
  - Cancer surgery [Unknown]

NARRATIVE: CASE EVENT DATE: 20170413
